FAERS Safety Report 13600883 (Version 1)
Quarter: 2017Q2

REPORT INFORMATION
  Report Type: Spontaneous
  Country: US (occurrence: US)
  Receive Date: 20170601
  Receipt Date: 20170601
  Transmission Date: 20170830
  Serious: Yes (Hospitalization, Disabling, Other)
  Sender: FDA-Public Use
  Company Number: US-TEVA-772476USA

PATIENT
  Age: 91 Year
  Sex: Female
  Weight: 84.9 kg

DRUGS (8)
  1. WARFARIN [Suspect]
     Active Substance: WARFARIN
     Dosage: 500 MILLIGRAM DAILY; ONCE PER DAY AT NIGHT
     Route: 048
     Dates: start: 2016
  2. CARTIA XT [Concomitant]
     Active Substance: DILTIAZEM HYDROCHLORIDE
     Indication: DIABETES MELLITUS
     Dosage: 120 MILLIGRAM DAILY;
     Route: 048
     Dates: start: 1997
  3. REVATIO [Suspect]
     Active Substance: SILDENAFIL CITRATE
     Indication: CARDIAC DISORDER
     Dosage: 60 MILLIGRAM DAILY;
     Route: 048
     Dates: start: 201106
  4. WARFARIN [Suspect]
     Active Substance: WARFARIN
     Indication: THROMBOSIS
     Dosage: 500 MILLIGRAM DAILY; ONCE PER DAY AT NIGHT
     Route: 048
     Dates: end: 2011
  5. PANTOPRAZOLE [Concomitant]
     Active Substance: PANTOPRAZOLE
     Indication: GASTROOESOPHAGEAL REFLUX DISEASE
     Dosage: 40 MILLIGRAM DAILY;
     Route: 048
     Dates: start: 2002
  6. OXYBUTYNIN [Concomitant]
     Active Substance: OXYBUTYNIN
     Indication: BLOOD PRESSURE MEASUREMENT
     Dosage: 10 MILLIGRAM DAILY;
     Route: 048
     Dates: start: 2007
  7. LEVOTHYROXINE. [Concomitant]
     Active Substance: LEVOTHYROXINE
     Indication: THYROID HORMONES DECREASED
     Dosage: 100 MICROGRAM DAILY;
     Dates: start: 1967
  8. GLIPERIDE [Concomitant]
     Active Substance: GLIMEPIRIDE
     Indication: DIABETES MELLITUS
     Dosage: 2 MILLIGRAM DAILY;
     Route: 048

REACTIONS (9)
  - Herpes zoster [Recovering/Resolving]
  - Loss of consciousness [Recovered/Resolved]
  - Disability [Not Recovered/Not Resolved]
  - Skin infection [Recovering/Resolving]
  - Musculoskeletal pain [Recovering/Resolving]
  - Cardiac disorder [Recovered/Resolved]
  - Weight decreased [Unknown]
  - Body height decreased [Not Recovered/Not Resolved]
  - Laceration [Recovering/Resolving]

NARRATIVE: CASE EVENT DATE: 2011
